FAERS Safety Report 25845298 (Version 1)
Quarter: 2025Q3

REPORT INFORMATION
  Report Type: Spontaneous
  Country: IN (occurrence: IN)
  Receive Date: 20250925
  Receipt Date: 20250925
  Transmission Date: 20251021
  Serious: Yes (Other)
  Sender: Haleon PLC
  Company Number: IN-HALEON-2264059

PATIENT
  Age: 52 Year
  Sex: Female

DRUGS (2)
  1. DICLOFENAC [Suspect]
     Active Substance: DICLOFENAC
     Indication: Arthralgia
  2. DICLOFENAC [Suspect]
     Active Substance: DICLOFENAC
     Indication: Pyrexia

REACTIONS (20)
  - Acute febrile neutrophilic dermatosis [Recovered/Resolved]
  - Malaise [Recovered/Resolved]
  - Neutrophilia [Recovered/Resolved]
  - Red blood cell sedimentation rate increased [Recovered/Resolved]
  - C-reactive protein increased [Recovered/Resolved]
  - Hidradenitis [Recovered/Resolved]
  - Skin necrosis [Recovered/Resolved]
  - Papule [Recovered/Resolved]
  - Skin plaque [Recovered/Resolved]
  - Fatigue [Recovered/Resolved]
  - Pyrexia [Recovered/Resolved]
  - Pustule [Recovered/Resolved]
  - Skin lesion [Recovered/Resolved]
  - Oropharyngeal pain [Recovered/Resolved]
  - Pain [Recovered/Resolved]
  - Rash erythematous [Recovered/Resolved]
  - Myalgia [Recovered/Resolved]
  - Arthralgia [Recovered/Resolved]
  - Leukocytosis [Recovered/Resolved]
  - Skin mass [Recovered/Resolved]
